FAERS Safety Report 6188853-0 (Version None)
Quarter: 2009Q2

REPORT INFORMATION
  Report Type: 
  Country: None (occurrence: None)
  Receive Date: 20090513
  Receipt Date: 20090507
  Transmission Date: 20091009
  Serious: Yes (Life-Threatening, Hospitalization, Other)
  Sender: FDA-Public Use
  Company Number: US-JNJFOC-20090501607

PATIENT
  Age: 26 Year
  Sex: Female

DRUGS (15)
  1. HALOPERIDOL [Suspect]
     Indication: DRUG USE FOR UNKNOWN INDICATION
     Route: 065
  2. BENZTROPINE MESYLATE [Suspect]
     Indication: DRUG USE FOR UNKNOWN INDICATION
     Route: 065
  3. RISPERIDONE [Suspect]
     Indication: DRUG USE FOR UNKNOWN INDICATION
     Route: 065
  4. LORAZEPAM [Suspect]
     Indication: DRUG USE FOR UNKNOWN INDICATION
     Route: 065
  5. OLANZAPINE [Suspect]
     Indication: DRUG USE FOR UNKNOWN INDICATION
     Route: 065
  6. VALPROIC ACID [Suspect]
     Indication: DRUG USE FOR UNKNOWN INDICATION
     Route: 065
  7. QUETIAPINE [Suspect]
     Indication: DRUG USE FOR UNKNOWN INDICATION
     Route: 065
  8. ACETAMINOPHEN [Concomitant]
     Indication: PAIN
     Route: 065
  9. BUTALBITAL [Concomitant]
     Indication: PAIN
     Route: 065
  10. OXYCODONE HCL [Concomitant]
     Indication: PAIN
     Route: 065
  11. HYDROCODONE BITARTRATE [Concomitant]
     Indication: PAIN
     Route: 065
  12. SUMATRIPTAN SUCCINATE [Concomitant]
     Indication: PAIN
     Route: 065
  13. IBUPROFEN [Concomitant]
     Indication: PAIN
     Route: 065
  14. ALL OTHER THERAPEUTIC PRODUCTS [Concomitant]
     Indication: PAIN
     Route: 065
  15. CAFFEINE [Concomitant]
     Indication: PAIN
     Route: 065

REACTIONS (6)
  - ATELECTASIS [None]
  - BRADYCARDIA [None]
  - DIARRHOEA [None]
  - GRAND MAL CONVULSION [None]
  - NEUROLEPTIC MALIGNANT SYNDROME [None]
  - PNEUMONIA [None]
